FAERS Safety Report 5909746-7 (Version None)
Quarter: 2008Q4

REPORT INFORMATION
  Report Type: 
  Country: None (occurrence: None)
  Receive Date: 20081007
  Receipt Date: 20081001
  Transmission Date: 20090506
  Serious: Yes (Other)
  Sender: FDA-Public Use
  Company Number: US-CELGENEUS-163-21880-08090961

PATIENT
  Sex: Male

DRUGS (5)
  1. REVLIMID [Suspect]
     Indication: MULTIPLE MYELOMA
     Route: 048
     Dates: start: 20080801
  2. REVLIMID [Suspect]
     Route: 048
     Dates: start: 20071023, end: 20071201
  3. REVLIMID [Suspect]
     Route: 048
     Dates: start: 20071217, end: 20071201
  4. REVLIMID [Suspect]
     Route: 048
     Dates: start: 20080108, end: 20080701
  5. DEXAMETHASONE [Concomitant]
     Indication: MULTIPLE MYELOMA
     Route: 065

REACTIONS (3)
  - GALLBLADDER DISORDER [None]
  - INTERSTITIAL LUNG DISEASE [None]
  - RECTAL HAEMORRHAGE [None]
